FAERS Safety Report 12756050 (Version 4)
Quarter: 2016Q4

REPORT INFORMATION
  Report Type: Spontaneous
  Country: US (occurrence: US)
  Receive Date: 20160916
  Receipt Date: 20161028
  Transmission Date: 20170207
  Serious: Yes (Hospitalization)
  Sender: FDA-Public Use
  Company Number: US-UNITED THERAPEUTICS-UNT-2016-014520

PATIENT
  Age: 76 Year
  Sex: Female
  Weight: 88.89 kg

DRUGS (3)
  1. TYVASO [Suspect]
     Active Substance: TREPROSTINIL
     Dosage: 18-90 ?G, QID
  2. TYVASO [Suspect]
     Active Substance: TREPROSTINIL
     Dosage: 18-54 ?G, QID
  3. TYVASO [Suspect]
     Active Substance: TREPROSTINIL
     Indication: PULMONARY ARTERIAL HYPERTENSION
     Dosage: 54-90 ?G, QID
     Dates: start: 20120202

REACTIONS (6)
  - Pneumonia [Recovered/Resolved]
  - Fluid retention [Recovered/Resolved]
  - Oxygen saturation decreased [Recovered/Resolved]
  - Cardiac failure congestive [Recovered/Resolved]
  - Pulmonary arterial hypertension [Recovering/Resolving]
  - Product use issue [Unknown]

NARRATIVE: CASE EVENT DATE: 20160901
